FAERS Safety Report 23302645 (Version 1)
Quarter: 2023Q4

REPORT INFORMATION
  Report Type: Report from Study
  Country: US (occurrence: None)
  Receive Date: 20231215
  Receipt Date: 20231215
  Transmission Date: 20240109
  Serious: Yes (Other)
  Sender: FDA-Public Use
  Company Number: 2023A280490

PATIENT
  Sex: Female

DRUGS (1)
  1. CALQUENCE [Suspect]
     Active Substance: ACALABRUTINIB
     Indication: Non-Hodgkin^s lymphoma
     Route: 048
     Dates: start: 202311

REACTIONS (5)
  - Diabetes mellitus [Unknown]
  - Atrial fibrillation [Unknown]
  - Product dose omission issue [Unknown]
  - Fatigue [Unknown]
  - Diarrhoea [Unknown]
